FAERS Safety Report 9906778 (Version 2)
Quarter: 2014Q1

REPORT INFORMATION
  Report Type: Spontaneous
  Country: CH (occurrence: CH)
  Receive Date: 20140218
  Receipt Date: 20140325
  Transmission Date: 20141002
  Serious: No
  Sender: FDA-Public Use
  Company Number: CH-ELI_LILLY_AND_COMPANY-CH201402003709

PATIENT
  Sex: Female
  Weight: 79 kg

DRUGS (7)
  1. FORSTEO [Suspect]
     Indication: OSTEOPOROSIS
     Dosage: 20 UG, QD
     Route: 058
     Dates: start: 20130817
  2. FORSTEO [Suspect]
     Dosage: 20 UG, QD
     Route: 058
     Dates: start: 20140203
  3. CELEBREX [Concomitant]
     Indication: PAIN
     Dosage: UNK, QD
     Route: 048
  4. NOVALGIN                           /06276704/ [Concomitant]
     Indication: PAIN
     Dosage: 500 MG, TID
     Route: 048
     Dates: start: 201208
  5. RAMIPRIL [Concomitant]
     Indication: HYPERTENSION
     Dosage: UNK, UNKNOWN
     Route: 048
     Dates: start: 2011
  6. ORTHO-GYNEST [Concomitant]
     Indication: HORMONE THERAPY
     Dosage: UNK, UNKNOWN
     Route: 067
  7. ATROVENT [Concomitant]

REACTIONS (4)
  - Palpitations [Not Recovered/Not Resolved]
  - Hyperhidrosis [Not Recovered/Not Resolved]
  - Pain in extremity [Unknown]
  - Nausea [Recovered/Resolved]
